FAERS Safety Report 12106147 (Version 1)
Quarter: 2016Q1

REPORT INFORMATION
  Report Type: Spontaneous
  Country: US (occurrence: US)
  Receive Date: 20160223
  Receipt Date: 20160223
  Transmission Date: 20160526
  Serious: Yes (Other)
  Sender: FDA-Public Use
  Company Number: US-ELI_LILLY_AND_COMPANY-US201602003875

PATIENT
  Sex: Male

DRUGS (1)
  1. ZYPREXA [Suspect]
     Active Substance: OLANZAPINE
     Indication: PRODUCT USED FOR UNKNOWN INDICATION
     Dosage: UNK, UNKNOWN
     Route: 065

REACTIONS (10)
  - Fatigue [Not Recovered/Not Resolved]
  - Abnormal behaviour [Unknown]
  - Suicidal ideation [Unknown]
  - Sluggishness [Not Recovered/Not Resolved]
  - Pancreatitis [Unknown]
  - Depression [Unknown]
  - Blood glucose increased [Unknown]
  - Seizure like phenomena [Unknown]
  - Thanatophobia [Unknown]
  - Crying [Unknown]
